FAERS Safety Report 9033763 (Version 1)
Quarter: 2013Q1

REPORT INFORMATION
  Report Type: Spontaneous
  Country: US (occurrence: US)
  Receive Date: 20130128
  Receipt Date: 20130128
  Transmission Date: 20140127
  Serious: Yes (Other)
  Sender: FDA-Public Use
  Company Number: US-AMGEN-USASP2012075949

PATIENT
  Age: 60 Year
  Sex: Female

DRUGS (1)
  1. ENBREL [Suspect]
     Indication: PRODUCT USED FOR UNKNOWN INDICATION
     Dosage: 50 MG, QWK
     Route: 058

REACTIONS (6)
  - Ovarian cancer [Unknown]
  - Erythema [Unknown]
  - Pruritus [Recovered/Resolved]
  - Blister [Unknown]
  - Smear cervix abnormal [Unknown]
  - Chemical injury [Unknown]
